FAERS Safety Report 9275038 (Version 1)
Quarter: 2013Q2

REPORT INFORMATION
  Report Type: Report from Study
  Country: DE (occurrence: DE)
  Receive Date: 20130507
  Receipt Date: 20130507
  Transmission Date: 20140414
  Serious: Yes (Other)
  Sender: FDA-Public Use
  Company Number: DE-BAYER-2013-054280

PATIENT
  Sex: Female

DRUGS (1)
  1. BETAFERON [Suspect]
     Dosage: UNK

REACTIONS (2)
  - Muscle spasticity [None]
  - Drug ineffective [None]
